APPROVED DRUG PRODUCT: CARBAMAZEPINE
Active Ingredient: CARBAMAZEPINE
Strength: 200MG
Dosage Form/Route: TABLET;ORAL
Application: A214328 | Product #001
Applicant: RK PHARMA INC
Approved: Aug 16, 2021 | RLD: No | RS: No | Type: DISCN